FAERS Safety Report 21397041 (Version 1)
Quarter: 2022Q3

REPORT INFORMATION
  Report Type: Spontaneous
  Country: JP (occurrence: JP)
  Receive Date: 20220930
  Receipt Date: 20220930
  Transmission Date: 20221027
  Serious: Yes (Other)
  Sender: FDA-Public Use
  Company Number: JP-AMGEN-JPNSP2022166109

PATIENT

DRUGS (1)
  1. EVENITY [Suspect]
     Active Substance: ROMOSOZUMAB-AQQG
     Indication: Product used for unknown indication
     Dosage: 210 MILLIGRAM
     Route: 058
     Dates: end: 2022

REACTIONS (10)
  - Femur fracture [Recovering/Resolving]
  - Eczema [Not Recovered/Not Resolved]
  - Postoperative wound complication [Unknown]
  - Post procedural pruritus [Unknown]
  - Procedural pain [Unknown]
  - Dermatitis [Unknown]
  - Rash [Unknown]
  - Urticaria [Unknown]
  - Jaw disorder [Unknown]
  - Hypersensitivity [Unknown]

NARRATIVE: CASE EVENT DATE: 20220101
